FAERS Safety Report 24761511 (Version 1)
Quarter: 2024Q4

REPORT INFORMATION
  Report Type: Spontaneous
  Country: US (occurrence: US)
  Receive Date: 20241220
  Receipt Date: 20241220
  Transmission Date: 20250114
  Serious: Yes (Hospitalization)
  Sender: RIGEL PHARMACEUTICALS
  Company Number: US-RIGEL Pharmaceuticals INC- 20241200103

PATIENT
  Sex: Female
  Weight: 56.6 kg

DRUGS (2)
  1. TAVALISSE [Suspect]
     Active Substance: FOSTAMATINIB
     Indication: Immune thrombocytopenia
     Dosage: 150 MG, BID
     Route: 048
     Dates: start: 20240701, end: 202412
  2. TAVALISSE [Suspect]
     Active Substance: FOSTAMATINIB
     Dosage: 150 MILLIGRAM, QD
     Dates: start: 202412

REACTIONS (6)
  - Vomiting [Unknown]
  - Diarrhoea [Unknown]
  - White blood cell count decreased [Unknown]
  - Red blood cell count decreased [Unknown]
  - Platelet count [Unknown]
  - Vision blurred [Unknown]

NARRATIVE: CASE EVENT DATE: 20240101
